FAERS Safety Report 17420646 (Version 1)
Quarter: 2020Q1

REPORT INFORMATION
  Report Type: Spontaneous
  Country: US (occurrence: US)
  Receive Date: 20200214
  Receipt Date: 20200214
  Transmission Date: 20200409
  Serious: Yes (Hospitalization)
  Sender: FDA-Public Use
  Company Number: US-ASTRAZENECA-2020SE20654

PATIENT
  Age: 950 Month
  Sex: Male

DRUGS (1)
  1. LOKELMA [Suspect]
     Active Substance: SODIUM ZIRCONIUM CYCLOSILICATE
     Route: 048
     Dates: start: 2019

REACTIONS (4)
  - Cardiac disorder [Recovering/Resolving]
  - Cardiac murmur [Unknown]
  - Influenza [Unknown]
  - Anxiety [Unknown]
